FAERS Safety Report 20113605 (Version 1)
Quarter: 2021Q4

REPORT INFORMATION
  Report Type: Spontaneous
  Country: CA (occurrence: CA)
  Receive Date: 20211125
  Receipt Date: 20211125
  Transmission Date: 20220303
  Serious: Yes (Hospitalization)
  Sender: FDA-Public Use
  Company Number: CA-TEVA-2021-CA-1979953

PATIENT
  Age: 72 Year
  Sex: Male

DRUGS (10)
  1. MYCOPHENOLIC ACID [Suspect]
     Active Substance: MYCOPHENOLIC ACID
     Indication: Immunosuppressant drug therapy
     Dosage: 2 GRAM DAILY;
     Route: 065
     Dates: start: 200801
  2. PREDNISONE [Suspect]
     Active Substance: PREDNISONE
     Indication: Immunosuppressant drug therapy
     Dosage: 10 MILLIGRAM DAILY;
     Route: 065
     Dates: start: 200801
  3. PREDNISONE [Suspect]
     Active Substance: PREDNISONE
     Indication: Immunosuppressant drug therapy
     Dosage: 5 MILLIGRAM DAILY;
     Route: 048
     Dates: start: 201708
  4. TACROLIMUS [Suspect]
     Active Substance: TACROLIMUS
     Indication: Immunosuppressant drug therapy
     Dosage: 4 MILLIGRAM DAILY;
     Route: 065
     Dates: start: 200801
  5. TACROLIMUS [Suspect]
     Active Substance: TACROLIMUS
     Indication: Immunosuppressant drug therapy
     Dosage: 1 MILLIGRAM DAILY;
     Route: 048
     Dates: start: 201708
  6. TACROLIMUS [Suspect]
     Active Substance: TACROLIMUS
     Indication: Immunosuppressant drug therapy
     Route: 048
     Dates: start: 2017
  7. SIROLIMUS [Suspect]
     Active Substance: SIROLIMUS
     Indication: Immunosuppressant drug therapy
     Dosage: 1 MILLIGRAM DAILY;
     Route: 048
     Dates: start: 201708
  8. SIROLIMUS [Suspect]
     Active Substance: SIROLIMUS
     Indication: Immunosuppressant drug therapy
     Dosage: 2 MILLIGRAM DAILY;
     Route: 048
     Dates: start: 2017
  9. ALDESLEUKIN [Suspect]
     Active Substance: ALDESLEUKIN
     Indication: Squamous cell carcinoma of skin
     Dosage: 8M IU TOTAL DOSE PER SESSION WEEKLY
     Route: 026
     Dates: start: 201708
  10. ALDESLEUKIN [Suspect]
     Active Substance: ALDESLEUKIN
     Indication: Squamous cell carcinoma of skin
     Dosage: TOTAL DOSE ADMINISTERED TO 10M IU PER SESSION
     Route: 026

REACTIONS (4)
  - Squamous cell carcinoma of skin [Recovered/Resolved]
  - Chills [Unknown]
  - Injection site pain [Unknown]
  - Injection site swelling [Unknown]
